FAERS Safety Report 21705660 (Version 2)
Quarter: 2023Q1

REPORT INFORMATION
  Report Type: Spontaneous
  Country: US (occurrence: US)
  Receive Date: 20221209
  Receipt Date: 20230313
  Transmission Date: 20230418
  Serious: Yes (Other)
  Sender: FDA-Public Use
  Company Number: US-BAYER-2022P026259

PATIENT
  Age: 40 Year
  Sex: Female
  Weight: 89.342 kg

DRUGS (9)
  1. ADEMPAS [Suspect]
     Active Substance: RIOCIGUAT
     Indication: Pulmonary arterial hypertension
     Dosage: UNK
     Dates: start: 20221102
  2. ADEMPAS [Suspect]
     Active Substance: RIOCIGUAT
     Indication: Pulmonary arterial hypertension
     Dosage: 2 MG, TID
     Route: 048
  3. ORENITRAM [Suspect]
     Active Substance: TREPROSTINIL
     Indication: Pulmonary arterial hypertension
     Dosage: 5 MG
  4. ORENITRAM [Suspect]
     Active Substance: TREPROSTINIL
     Indication: Pulmonary arterial hypertension
     Dosage: 5 MG
  5. ADCIRCA [Suspect]
     Active Substance: TADALAFIL
     Indication: Pulmonary arterial hypertension
  6. FUROSEMIDE [Suspect]
     Active Substance: FUROSEMIDE
  7. SPIRONOLACTONE [Suspect]
     Active Substance: SPIRONOLACTONE
  8. LETAIRIS [Concomitant]
     Active Substance: AMBRISENTAN
  9. LETAIRIS [Concomitant]
     Active Substance: AMBRISENTAN
     Dosage: 80 MG

REACTIONS (8)
  - Gastrooesophageal reflux disease [Not Recovered/Not Resolved]
  - Weight increased [None]
  - Weight decreased [None]
  - Gastrointestinal disorder [None]
  - Hypotension [None]
  - Diarrhoea [Not Recovered/Not Resolved]
  - Dizziness [Not Recovered/Not Resolved]
  - Headache [None]
